FAERS Safety Report 18160979 (Version 1)
Quarter: 2020Q3

REPORT INFORMATION
  Report Type: Spontaneous
  Country: US (occurrence: US)
  Receive Date: 20200817
  Receipt Date: 20200817
  Transmission Date: 20201103
  Serious: Yes (Disabling)
  Sender: FDA-Public Use
  Company Number: None

PATIENT
  Age: 61 Year
  Sex: Female
  Weight: 56.7 kg

DRUGS (1)
  1. INTRAROSA [Suspect]
     Active Substance: PRASTERONE
     Indication: VULVOVAGINAL DRYNESS
     Dosage: ?          QUANTITY:1 CAPSULE(S);?
     Route: 067
     Dates: start: 20200106

REACTIONS (7)
  - Dyspareunia [None]
  - Flatulence [None]
  - Pain [None]
  - Vaginal discharge [None]
  - Abdominal distension [None]
  - Back pain [None]
  - Muscle spasms [None]

NARRATIVE: CASE EVENT DATE: 20200625
